FAERS Safety Report 6678366-1 (Version None)
Quarter: 2010Q2

REPORT INFORMATION
  Report Type: 
  Country: None (occurrence: None)
  Receive Date: 20100413
  Receipt Date: 20100401
  Transmission Date: 20101027
  Serious: No
  Sender: FDA-Public Use
  Company Number: US-BIOGENIDEC-2010BI011272

PATIENT
  Age: 37 Year
  Sex: Female

DRUGS (2)
  1. TYSABRI [Suspect]
     Indication: MULTIPLE SCLEROSIS
     Route: 042
     Dates: start: 20080310, end: 20091209
  2. TYSABRI [Suspect]
     Route: 042
     Dates: start: 20100301

REACTIONS (11)
  - AUTOIMMUNE THYROIDITIS [None]
  - EAR INFECTION [None]
  - FATIGUE [None]
  - HEADACHE [None]
  - MIGRAINE [None]
  - MULTIPLE SCLEROSIS [None]
  - MULTIPLE SCLEROSIS RELAPSE [None]
  - NAUSEA [None]
  - OEDEMA PERIPHERAL [None]
  - PAIN [None]
  - STRESS [None]
